FAERS Safety Report 7910546-7 (Version None)
Quarter: 2011Q4

REPORT INFORMATION
  Report Type: 
  Country: None (occurrence: None)
  Receive Date: 20111111
  Receipt Date: 20111028
  Transmission Date: 20120403
  Serious: Yes (Other)
  Sender: FDA-Public Use
  Company Number: PHHY2011JP94612

PATIENT
  Age: 50 Year
  Sex: Female

DRUGS (1)
  1. CYCLOSPORINE [Suspect]
     Indication: PSORIASIS
     Route: 048

REACTIONS (5)
  - PSORIATIC ARTHROPATHY [None]
  - SKIN EXFOLIATION [None]
  - ERYTHEMA [None]
  - RASH [None]
  - HEPATIC FUNCTION ABNORMAL [None]
